FAERS Safety Report 8764674 (Version 1)
Quarter: 2012Q4

REPORT INFORMATION
  Report Type: 
  Country: DE (occurrence: DE)
  Receive Date: 20120829
  Receipt Date: 20120829
  Transmission Date: 20130627
  Serious: Yes (Other)
  Sender: FDA-Public Use
  Company Number: DE-ELI_LILLY_AND_COMPANY-DE201208007205

PATIENT
  Sex: Female

DRUGS (7)
  1. FORSTEO [Suspect]
     Indication: OSTEOPOROSIS
     Dosage: UNK, qd
     Route: 058
     Dates: start: 20101112
  2. NOVAMIN [Concomitant]
     Dosage: UNK, unknown
     Route: 065
  3. OMEPRAZOL [Concomitant]
     Dosage: UNK, unknown
     Route: 065
  4. AMLODIPINE [Concomitant]
     Dosage: UNK, unknown
     Route: 065
  5. METOPROLOL SUCCINATE [Concomitant]
     Dosage: UNK, unknown
     Route: 065
  6. CALCIUM [Concomitant]
     Dosage: UNK, unknown
     Route: 065
  7. VITAMIN D3 [Concomitant]
     Dosage: UNK, unknown
     Route: 065

REACTIONS (3)
  - Age-related macular degeneration [Not Recovered/Not Resolved]
  - Visual impairment [Not Recovered/Not Resolved]
  - Cyst [Not Recovered/Not Resolved]
